FAERS Safety Report 19587514 (Version 6)
Quarter: 2023Q1

REPORT INFORMATION
  Report Type: Report from Study
  Country: FR (occurrence: FR)
  Receive Date: 20210721
  Receipt Date: 20230324
  Transmission Date: 20230418
  Serious: Yes (Life-Threatening, Hospitalization)
  Sender: FDA-Public Use
  Company Number: NVSC2021FR162731

PATIENT
  Age: 59 Year
  Sex: Female
  Weight: 80 kg

DRUGS (22)
  1. NILOTINIB [Suspect]
     Active Substance: NILOTINIB
     Indication: Philadelphia chromosome positive
     Dosage: 800 MG
     Route: 048
     Dates: start: 20210505, end: 20210702
  2. METHOTREXATE [Suspect]
     Active Substance: METHOTREXATE
     Indication: Product used for unknown indication
     Dosage: 15 MG
     Route: 037
     Dates: start: 20210505, end: 20210519
  3. CYTARABINE [Suspect]
     Active Substance: CYTARABINE
     Indication: Product used for unknown indication
     Dosage: 40 MG
     Route: 037
     Dates: start: 20210505, end: 20210519
  4. DEXAMETHASONE [Suspect]
     Active Substance: DEXAMETHASONE
     Indication: Product used for unknown indication
     Dosage: 40 MG
     Route: 048
     Dates: start: 20210505, end: 20210527
  5. PREDNISONE [Suspect]
     Active Substance: PREDNISONE
     Indication: Product used for unknown indication
     Dosage: 40 MG
     Route: 037
     Dates: start: 20210505, end: 20210519
  6. VINCRISTINE [Suspect]
     Active Substance: VINCRISTINE
     Indication: Product used for unknown indication
     Dosage: 2 MG
     Route: 042
     Dates: start: 20210505, end: 20210526
  7. VALACYCLOVIR HYDROCHLORIDE [Concomitant]
     Active Substance: VALACYCLOVIR HYDROCHLORIDE
     Indication: Infection prophylaxis
     Dosage: 500 MG
     Route: 048
     Dates: start: 20210429, end: 20210523
  8. FUNGIZONE [Concomitant]
     Active Substance: AMPHOTERICIN B
     Indication: Prophylaxis
     Dosage: 600 MG
     Route: 048
     Dates: start: 20210429, end: 20210607
  9. ATENOLOL [Concomitant]
     Active Substance: ATENOLOL
     Indication: Hypertension
     Dosage: 100 MG
     Route: 048
     Dates: start: 20210430
  10. SULFAMETHOXAZOLE AND TRIMETHOPRIM [Concomitant]
     Active Substance: SULFAMETHOXAZOLE\TRIMETHOPRIM
     Indication: Antifungal prophylaxis
     Dosage: 800 MG
     Route: 048
     Dates: start: 20210430, end: 20210609
  11. METHYLPREDNISOLONE [Concomitant]
     Active Substance: METHYLPREDNISOLONE
     Indication: Product used for unknown indication
     Dosage: 120 MG
     Route: 042
     Dates: start: 20210428, end: 20210504
  12. INSULINE LISPRO [Concomitant]
     Indication: Hyperglycaemia
     Dosage: 100 IU
     Route: 058
     Dates: start: 20210430, end: 20210604
  13. AMLODIPINE [Concomitant]
     Active Substance: AMLODIPINE BESYLATE
     Indication: Hypertension
     Dosage: 5 MG
     Route: 048
     Dates: start: 20210503, end: 20210701
  14. AMIKACIN [Concomitant]
     Active Substance: AMIKACIN
     Indication: Product used for unknown indication
     Dosage: UNK
     Route: 042
     Dates: start: 20210506, end: 20210604
  15. OXYCODONE [Concomitant]
     Active Substance: OXYCODONE
     Indication: Pain
     Dosage: 10 MG
     Route: 048
     Dates: start: 20210510, end: 20210519
  16. OXYCODONE [Concomitant]
     Active Substance: OXYCODONE
     Dosage: 50 MG
     Route: 042
     Dates: start: 20210519, end: 20210606
  17. LINEZOLID [Concomitant]
     Active Substance: LINEZOLID
     Indication: Pneumonia
     Dosage: 1200 MG
     Route: 042
     Dates: start: 20210511, end: 20210518
  18. FILGRASTIM [Concomitant]
     Active Substance: FILGRASTIM
     Indication: Neutropenia
     Dosage: 48 IU
     Route: 058
     Dates: start: 20210528, end: 20210601
  19. PANTOPRAZOLE [Concomitant]
     Active Substance: PANTOPRAZOLE
     Indication: Gastrointestinal disorder prophylaxis
     Dosage: 40 MG
     Route: 042
     Dates: start: 20210523
  20. VANCOMYCIN [Concomitant]
     Active Substance: VANCOMYCIN
     Indication: Inflammation
     Dosage: 3 G
     Route: 042
     Dates: start: 20210524, end: 20210603
  21. PIPERACILLIN AND TAZOBACTAM [Concomitant]
     Active Substance: PIPERACILLIN SODIUM\TAZOBACTAM SODIUM
     Indication: Inflammation
     Dosage: 12 G
     Route: 042
     Dates: start: 20210524, end: 20210603
  22. KETAMINE [Concomitant]
     Active Substance: KETAMINE
     Indication: Pain
     Dosage: 24 MG
     Route: 042
     Dates: start: 20210524, end: 20210608

REACTIONS (6)
  - Stomatitis [Recovered/Resolved]
  - Diabetes insipidus [Recovered/Resolved]
  - Bronchopulmonary aspergillosis [Recovered/Resolved]
  - Systemic candida [Unknown]
  - Cholestasis [Unknown]
  - Acute kidney injury [Unknown]

NARRATIVE: CASE EVENT DATE: 20210509
